FAERS Safety Report 16850260 (Version 1)
Quarter: 2019Q3

REPORT INFORMATION
  Report Type: Spontaneous
  Country: US (occurrence: US)
  Receive Date: 20190802
  Receipt Date: 20190802
  Transmission Date: 20191005
  Serious: No
  Sender: FDA-Public Use
  Company Number: None

PATIENT
  Age: 72 Year
  Sex: Female

DRUGS (11)
  1. LACTOBACILLUS [Concomitant]
     Active Substance: LACTOBACILLUS ACIDOPHILUS
  2. MULTIVITAMIN [Concomitant]
     Active Substance: VITAMINS
  3. LEVOTHYROXINE. [Concomitant]
     Active Substance: LEVOTHYROXINE
  4. CELECOXIB. [Concomitant]
     Active Substance: CELECOXIB
  5. DOCUSATE [Concomitant]
     Active Substance: DOCUSATE
  6. GRANULES [Concomitant]
  7. SUCCINATE [Concomitant]
  8. ATORVASTATIN [Concomitant]
     Active Substance: ATORVASTATIN
  9. NIVOLUMAB [Suspect]
     Active Substance: NIVOLUMAB
     Indication: MALIGNANT MELANOMA
     Route: 042
     Dates: start: 20180821, end: 20181226
  10. METOPROLOL. [Concomitant]
     Active Substance: METOPROLOL
  11. TRIAMTERENE AND HYDROCHLOROTHIAZIDE [Concomitant]
     Active Substance: HYDROCHLOROTHIAZIDE\TRIAMTERENE

REACTIONS (4)
  - Oedema peripheral [None]
  - Rash [None]
  - Autoimmune encephalopathy [None]
  - Cellulitis [None]

NARRATIVE: CASE EVENT DATE: 20181219
